FAERS Safety Report 25233144 (Version 1)
Quarter: 2025Q2

REPORT INFORMATION
  Report Type: Spontaneous
  Country: US (occurrence: US)
  Receive Date: 20250424
  Receipt Date: 20250424
  Transmission Date: 20250717
  Serious: No
  Sender: BAYER HEALTHCARE LLC
  Company Number: US-BAYER-2025A050922

PATIENT
  Sex: Female

DRUGS (12)
  1. CLARITIN [Suspect]
     Active Substance: LORATADINE
  2. ALLEGRA [Concomitant]
     Active Substance: FEXOFENADINE HYDROCHLORIDE
  3. EPIPEN [Concomitant]
     Active Substance: EPINEPHRINE
  4. HYDROXYZINE HYDROCHLORIDE [Concomitant]
     Active Substance: HYDROXYZINE HYDROCHLORIDE
  5. EFFEXOR [Concomitant]
     Active Substance: VENLAFAXINE HYDROCHLORIDE
  6. DOXEPIN [Concomitant]
     Active Substance: DOXEPIN
  7. FAMOTIDINE [Concomitant]
     Active Substance: FAMOTIDINE
  8. XOLAIR [Concomitant]
     Active Substance: OMALIZUMAB
  9. SINGULAIR [Concomitant]
     Active Substance: MONTELUKAST SODIUM
  10. PREDNISONE [Concomitant]
     Active Substance: PREDNISONE
  11. BENADRYL [Concomitant]
     Active Substance: DIPHENHYDRAMINE HYDROCHLORIDE
  12. ZYRTEC [Concomitant]
     Active Substance: CETIRIZINE HYDROCHLORIDE

REACTIONS (1)
  - Drug ineffective [Unknown]
